FAERS Safety Report 9587677 (Version 3)
Quarter: 2013Q4

REPORT INFORMATION
  Report Type: Spontaneous
  Country: US (occurrence: US)
  Receive Date: 20131003
  Receipt Date: 20131025
  Transmission Date: 20140711
  Serious: Yes (Other)
  Sender: FDA-Public Use
  Company Number: US-PFIZER INC-2013279788

PATIENT
  Age: 66 Year
  Sex: Male
  Weight: 69.39 kg

DRUGS (9)
  1. TOVIAZ [Suspect]
     Indication: HYPERTONIC BLADDER
     Dosage: 8 MG, 1X/DAY
     Route: 048
     Dates: start: 20130925, end: 20130925
  2. TOVIAZ [Suspect]
     Indication: POLLAKIURIA
  3. CLOBETASOL [Concomitant]
     Indication: RASH
     Dosage: UNK
     Route: 061
  4. MELATONIN [Concomitant]
     Dosage: 10 MG, 1X/DAY
  5. EFFEXOR [Concomitant]
     Dosage: 75 MG, 2X/DAY
  6. PROTONIX [Concomitant]
     Dosage: 40 MG, 1X/DAY
  7. LISINOPRIL [Concomitant]
     Dosage: 20 MG, 1X/DAY
  8. BUPROPION [Concomitant]
     Dosage: 150 MG, UNK
  9. MIRAPEX [Concomitant]
     Dosage: 3 MG, 1X/DAY

REACTIONS (2)
  - Urinary retention [Recovering/Resolving]
  - Parkinsonism [Unknown]
